FAERS Safety Report 7996611 (Version 3)
Quarter: 2013Q2

REPORT INFORMATION
  Report Type: Report from Study
  Country: MX (occurrence: MX)
  Receive Date: 20110617
  Receipt Date: 20130607
  Transmission Date: 20140414
  Serious: Yes (Hospitalization, Other)
  Sender: FDA-Public Use
  Company Number: PHHY2011MX50180

PATIENT
  Age: 83 Year
  Sex: Female

DRUGS (4)
  1. EXELON PATCH [Suspect]
     Indication: DEMENTIA ALZHEIMER^S TYPE
     Dosage: 4.6 MG (PATCH 5 CM2), DAILY
     Route: 062
     Dates: start: 200906
  2. EXELON PATCH [Suspect]
     Dosage: 4.6 MG (PATCH 5 CM2), DAILY
     Route: 062
  3. POLIVITAMINE [Concomitant]
     Dosage: UNK UKN, UNK
  4. MOPRAL [Concomitant]
     Dosage: UNK UKN, UNK

REACTIONS (3)
  - Femur fracture [Recovered/Resolved]
  - Pain [Recovered/Resolved]
  - Fall [Unknown]
